FAERS Safety Report 7712962-5 (Version None)
Quarter: 2011Q3

REPORT INFORMATION
  Report Type: 
  Country: None (occurrence: None)
  Receive Date: 20110826
  Receipt Date: 20110824
  Transmission Date: 20111222
  Serious: Yes (Hospitalization, Other)
  Sender: FDA-Public Use
  Company Number: PHEH2011US02390

PATIENT
  Age: 14 Year
  Sex: Female

DRUGS (1)
  1. TEGRETOL [Suspect]
     Dosage: UNK UKN, UNK

REACTIONS (8)
  - ABNORMAL BEHAVIOUR [None]
  - ACCIDENTAL DRUG INTAKE BY CHILD [None]
  - ATTENTION DEFICIT/HYPERACTIVITY DISORDER [None]
  - DISTURBANCE IN ATTENTION [None]
  - AGGRESSION [None]
  - SUICIDE ATTEMPT [None]
  - SELF INJURIOUS BEHAVIOUR [None]
  - EMOTIONAL DISORDER [None]
